FAERS Safety Report 13151175 (Version 1)
Quarter: 2017Q1

REPORT INFORMATION
  Report Type: Spontaneous
  Country: US (occurrence: US)
  Receive Date: 20170125
  Receipt Date: 20170125
  Transmission Date: 20170428
  Serious: No
  Sender: FDA-Public Use
  Company Number: US-SHIRE-US201620693

PATIENT
  Sex: Female
  Weight: 73.47 kg

DRUGS (2)
  1. PENTASA [Suspect]
     Active Substance: MESALAMINE
     Indication: PRODUCT USED FOR UNKNOWN INDICATION
     Dosage: 2 DF, 4X/DAY:QID
     Route: 048
  2. PENTASA [Suspect]
     Active Substance: MESALAMINE
     Dosage: 1 DF, 4X/DAY:QID
     Route: 048
     Dates: end: 2016

REACTIONS (2)
  - Pruritus [Unknown]
  - Incorrect dose administered [Recovered/Resolved]
